FAERS Safety Report 18553495 (Version 1)
Quarter: 2020Q4

REPORT INFORMATION
  Report Type: Spontaneous
  Country: US (occurrence: US)
  Receive Date: 20201127
  Receipt Date: 20201127
  Transmission Date: 20210114
  Serious: Yes (Other)
  Sender: FDA-Public Use
  Company Number: US-ACCORD-209425

PATIENT
  Sex: Female
  Weight: 81.82 kg

DRUGS (2)
  1. LEVOTHYROXINE. [Concomitant]
     Active Substance: LEVOTHYROXINE
     Dosage: ONCE A DAY
     Route: 048
  2. ESCITALOPRAM [Suspect]
     Active Substance: ESCITALOPRAM OXALATE
     Indication: ANXIETY
     Dosage: DISPENSED IN PHARMACY BOTTLE,ONCE A DAY
     Route: 048
     Dates: start: 202005

REACTIONS (1)
  - Coeliac disease [Not Recovered/Not Resolved]
